FAERS Safety Report 9065767 (Version 1)
Quarter: 2013Q1

REPORT INFORMATION
  Report Type: Report from Study
  Country: US (occurrence: US)
  Receive Date: 20130131
  Receipt Date: 20130131
  Transmission Date: 20140127
  Serious: No
  Sender: FDA-Public Use
  Company Number: US-ABBOTT-12P-163-1017354-00

PATIENT
  Age: 46 Year
  Sex: Female

DRUGS (3)
  1. HUMIRA [Suspect]
     Indication: CROHN^S DISEASE
     Route: 058
     Dates: start: 201210
  2. NALTREXONE [Concomitant]
     Indication: BREAST CANCER
  3. VENLAFAXINE [Concomitant]
     Indication: DEPRESSION

REACTIONS (2)
  - Wrong technique in drug usage process [Recovered/Resolved]
  - Injection site bruising [Recovered/Resolved]
